FAERS Safety Report 9134909 (Version 1)
Quarter: 2013Q1

REPORT INFORMATION
  Report Type: Spontaneous
  Country: US (occurrence: US)
  Receive Date: 20130304
  Receipt Date: 20130304
  Transmission Date: 20140127
  Serious: Yes (Other)
  Sender: FDA-Public Use
  Company Number: US-SANOFI-AVENTIS-2013SA020470

PATIENT
  Age: 75 Year
  Sex: Female

DRUGS (5)
  1. LANTUS SOLOSTAR [Suspect]
     Indication: TYPE 2 DIABETES MELLITUS
     Dosage: DOSE: 46-52 UNITS
     Route: 051
  2. SOLOSTAR [Suspect]
     Indication: TYPE 2 DIABETES MELLITUS
  3. PREDNISONE [Concomitant]
  4. GABAPENTIN [Concomitant]
  5. METFORMIN [Concomitant]
     Dosage: IN AM AND PM

REACTIONS (8)
  - Acute sinusitis [Unknown]
  - Neuropathy peripheral [Unknown]
  - Deafness [Unknown]
  - Arthritis [Unknown]
  - Incisional hernia [Unknown]
  - Renal failure chronic [Unknown]
  - Gait disturbance [Unknown]
  - Blood glucose decreased [Unknown]
